FAERS Safety Report 7834612-X (Version None)
Quarter: 2011Q4

REPORT INFORMATION
  Report Type: 
  Country: None (occurrence: None)
  Receive Date: 20111024
  Receipt Date: 20111012
  Transmission Date: 20120403
  Serious: Yes (Other)
  Sender: FDA-Public Use
  Company Number: JP-ELI_LILLY_AND_COMPANY-JP201110003337

PATIENT
  Age: 73 Year
  Sex: Male

DRUGS (1)
  1. GEMZAR [Suspect]
     Indication: BILE DUCT CANCER
     Dosage: UNK
     Route: 042
     Dates: start: 20110427

REACTIONS (1)
  - APLASIA PURE RED CELL [None]
